FAERS Safety Report 8622042-2 (Version None)
Quarter: 2012Q3

REPORT INFORMATION
  Report Type: 
  Country: None (occurrence: None)
  Receive Date: 20120823
  Receipt Date: 20120823
  Transmission Date: 20120928
  Serious: Yes (Hospitalization)
  Sender: FDA-Public Use
  Company Number: None

PATIENT
  Sex: Female

DRUGS (2)
  1. NEXAVAR [Suspect]
     Dosage: NEXAVAR 200MG, 400MG BID, ORAL
     Route: 048
     Dates: start: 20120814
  2. NEXAVAR [Suspect]
     Dosage: NEXAVAR 200MG, 400MG BID, ORAL
     Route: 048
     Dates: start: 20120816

REACTIONS (1)
  - GASTROINTESTINAL HAEMORRHAGE [None]
